FAERS Safety Report 8385035-9 (Version None)
Quarter: 2012Q2

REPORT INFORMATION
  Report Type: 
  Country: None (occurrence: None)
  Receive Date: 20120524
  Receipt Date: 20120516
  Transmission Date: 20120825
  Serious: Yes (Hospitalization, Disabling)
  Sender: FDA-Public Use
  Company Number: US-MERCK-1203USA02809

PATIENT
  Age: 65 Year
  Sex: Female

DRUGS (1)
  1. FOSAMAX [Suspect]
     Indication: OSTEOPENIA
     Route: 048
     Dates: start: 19970301, end: 20020401

REACTIONS (7)
  - SPINAL COMPRESSION FRACTURE [None]
  - OSTEOPOROSIS [None]
  - FEMUR FRACTURE [None]
  - HYPERTENSION [None]
  - DENTAL CARIES [None]
  - BLOOD CHOLESTEROL INCREASED [None]
  - DIABETES MELLITUS [None]
